FAERS Safety Report 17725998 (Version 2)
Quarter: 2020Q2

REPORT INFORMATION
  Report Type: Spontaneous
  Country: US (occurrence: US)
  Receive Date: 20200429
  Receipt Date: 20200604
  Transmission Date: 20200714
  Serious: Yes (Hospitalization)
  Sender: FDA-Public Use
  Company Number: US-ACTELION-A-NJ2020-204089

PATIENT
  Sex: Female
  Weight: 88.44 kg

DRUGS (6)
  1. VELETRI [Suspect]
     Active Substance: EPOPROSTENOL
     Indication: PULMONARY ARTERIAL HYPERTENSION
     Dosage: 41 NG/KG, PER MIN
     Route: 042
  2. VELETRI [Suspect]
     Active Substance: EPOPROSTENOL
     Dosage: 40 NG/KG, PER MIN
     Route: 042
     Dates: start: 20200331, end: 20200417
  3. SILDENAFIL CITRATE. [Concomitant]
     Active Substance: SILDENAFIL CITRATE
  4. REMODULIN [Concomitant]
     Active Substance: TREPROSTINIL
  5. LETAIRIS [Concomitant]
     Active Substance: AMBRISENTAN
  6. VELETRI [Suspect]
     Active Substance: EPOPROSTENOL
     Dosage: 35 NG/KG, PER MIN
     Route: 042

REACTIONS (3)
  - Flushing [Not Recovered/Not Resolved]
  - Pain in jaw [Not Recovered/Not Resolved]
  - Heart and lung transplant [Recovering/Resolving]
